FAERS Safety Report 19241299 (Version 3)
Quarter: 2022Q3

REPORT INFORMATION
  Report Type: Report from Study
  Country: US (occurrence: US)
  Receive Date: 20210510
  Receipt Date: 20220720
  Transmission Date: 20221027
  Serious: Yes (Other)
  Sender: FDA-Public Use
  Company Number: US-BAXALTA-2016BLT009428

PATIENT
  Sex: Female

DRUGS (2)
  1. HUMAN IMMUNOGLOBULIN G\HYALURONIDASE RECOMBINANT HUMAN [Suspect]
     Active Substance: HUMAN IMMUNOGLOBULIN G\HYALURONIDASE RECOMBINANT HUMAN
     Indication: Immunodeficiency common variable
     Route: 065
  2. COVID-19 VACCINE NOS [Suspect]
     Active Substance: COVID-19 VACCINE NOS
     Indication: Product used for unknown indication
     Route: 065

REACTIONS (12)
  - Bronchitis [Unknown]
  - Sjogren^s syndrome [Unknown]
  - Productive cough [Unknown]
  - Malaise [Unknown]
  - Abdominal distension [Unknown]
  - Infusion site pain [Unknown]
  - Condition aggravated [Unknown]
  - COVID-19 immunisation [Unknown]
  - Anaemia [Unknown]
  - Urinary tract infection [Unknown]
  - Visual impairment [Unknown]
  - Infection [Unknown]
